FAERS Safety Report 8239620-5 (Version None)
Quarter: 2012Q1

REPORT INFORMATION
  Report Type: 
  Country: None (occurrence: None)
  Receive Date: 20120327
  Receipt Date: 20120327
  Transmission Date: 20120608
  Serious: Yes (Hospitalization)
  Sender: FDA-Public Use
  Company Number: None

PATIENT
  Sex: Female
  Weight: 89 kg

DRUGS (5)
  1. CYCLOSPORINE [Suspect]
     Dosage: 4175 MG
  2. ANTI-THYMOCYTE GLOBULIN NOS [Suspect]
     Dosage: 375 MG
  3. CYCLOPHOSPHAMIDE [Suspect]
     Dosage: 12640 MG
  4. BUSULFAN [Suspect]
     Dosage: 716 MG
  5. METHOTREXATE [Suspect]
     Dosage: 90 MG

REACTIONS (8)
  - ACUTE RESPIRATORY FAILURE [None]
  - FLUID OVERLOAD [None]
  - VENOOCCLUSIVE DISEASE [None]
  - HAEMOPTYSIS [None]
  - LUNG CONSOLIDATION [None]
  - PNEUMONIA [None]
  - PULMONARY OEDEMA [None]
  - ATELECTASIS [None]
